FAERS Safety Report 8091579-X (Version None)
Quarter: 2012Q1

REPORT INFORMATION
  Report Type: 
  Country: None (occurrence: None)
  Receive Date: 20120130
  Receipt Date: 20120130
  Transmission Date: 20120608
  Serious: No
  Sender: FDA-Public Use
  Company Number: None

PATIENT
  Sex: Female
  Weight: 68.0396 kg

DRUGS (2)
  1. PREMARIN [Suspect]
     Indication: MENOPAUSE
     Dosage: .625 MG ONCE DAILY
     Dates: start: 20100908, end: 20120101
  2. PREMARIN [Suspect]
     Indication: MENOPAUSE
     Dosage: 0.3 MG ONCE DAILY
     Dates: start: 20100908, end: 20120101

REACTIONS (2)
  - HOT FLUSH [None]
  - PRODUCT QUALITY ISSUE [None]
